FAERS Safety Report 6831475-6 (Version None)
Quarter: 2010Q3

REPORT INFORMATION
  Report Type: 
  Country: None (occurrence: None)
  Receive Date: 20100712
  Receipt Date: 20100702
  Transmission Date: 20110219
  Serious: Yes (Other)
  Sender: FDA-Public Use
  Company Number: B0663905A

PATIENT
  Sex: Female

DRUGS (5)
  1. RELENZA [Suspect]
     Indication: INFLUENZA
     Dosage: 10MG PER DAY
     Route: 055
     Dates: start: 20100129, end: 20100129
  2. MUCODYNE [Concomitant]
     Route: 048
  3. ASVERIN [Concomitant]
     Route: 048
  4. CALONAL [Concomitant]
     Route: 048
  5. TAMIFLU [Concomitant]
     Dates: start: 20100130, end: 20100204

REACTIONS (2)
  - ABNORMAL BEHAVIOUR [None]
  - HALLUCINATION [None]
